FAERS Safety Report 7780143-5 (Version None)
Quarter: 2011Q3

REPORT INFORMATION
  Report Type: 
  Country: None (occurrence: None)
  Receive Date: 20110927
  Receipt Date: 20110920
  Transmission Date: 20111222
  Serious: Yes (Death, Other)
  Sender: FDA-Public Use
  Company Number: US-CEPHALON-2009006868

PATIENT
  Age: 57 Year
  Sex: Female

DRUGS (2)
  1. TRISENOX [Suspect]
     Indication: CHRONIC LYMPHOCYTIC LEUKAEMIA
     Route: 041
     Dates: start: 20040913, end: 20040923
  2. TRISENOX [Suspect]
     Indication: B-CELL SMALL LYMPHOCYTIC LYMPHOMA

REACTIONS (6)
  - LOCALISED OEDEMA [None]
  - DEATH [None]
  - DEHYDRATION [None]
  - VOMITING [None]
  - DECREASED APPETITE [None]
  - NAUSEA [None]
